FAERS Safety Report 9212787 (Version 1)
Quarter: 2013Q1

REPORT INFORMATION
  Report Type: Spontaneous
  Country: US (occurrence: None)
  Receive Date: 20120820
  Receipt Date: 20120820
  Transmission Date: 20140127
  Serious: No
  Sender: FDA-Public Use
  Company Number: 1000030018

PATIENT
  Age: 58 Year
  Sex: Female

DRUGS (3)
  1. VIIBRYD [Suspect]
     Indication: ANXIETY
     Dosage: 10 MG 1 IN 1 D
     Route: 048
     Dates: start: 20120406, end: 20120412
  2. TRIBENZOR (OLMESARTAN, AMLODIPINE, HYDROCHLOROTHIAZIDE) (OLMESARTAN AMLODIPINE, HYDROCHLOROTHIAZIDE) [Concomitant]
  3. SIMVASTATIN (SIMVASTATIN) (SIMVASTATIN) [Concomitant]

REACTIONS (3)
  - Fatigue [None]
  - Tinnitus [None]
  - Off label use [None]
